FAERS Safety Report 9420281 (Version 2)
Quarter: 2013Q4

REPORT INFORMATION
  Report Type: Spontaneous
  Country: US (occurrence: US)
  Receive Date: 20130725
  Receipt Date: 20131220
  Transmission Date: 20140711
  Serious: Yes (Hospitalization)
  Sender: FDA-Public Use
  Company Number: US-BAYER-2013-089504

PATIENT
  Age: 20 Year
  Sex: Female

DRUGS (6)
  1. GIANVI [Suspect]
  2. BEYAZ [Suspect]
  3. YAZ [Suspect]
  4. MEFENAMIC ACID [Concomitant]
     Dosage: 250 MG, 2 INITIALLY THEN 1 EVERY 6 HOURS AS NEEDED
     Route: 048
  5. PERCOCET [Concomitant]
     Indication: PAIN
  6. MORPHINE [Concomitant]
     Indication: PAIN

REACTIONS (4)
  - Deep vein thrombosis [Recovered/Resolved]
  - Pulmonary embolism [None]
  - Pelvic venous thrombosis [Recovered/Resolved]
  - Vena cava thrombosis [Recovered/Resolved]
